FAERS Safety Report 16712639 (Version 1)
Quarter: 2019Q3

REPORT INFORMATION
  Report Type: Report from Study
  Country: BR (occurrence: BR)
  Receive Date: 20190816
  Receipt Date: 20190816
  Transmission Date: 20191004
  Serious: Yes (Other)
  Sender: FDA-Public Use
  Company Number: PHHY2019BR188113

PATIENT
  Sex: Male

DRUGS (1)
  1. ENTRESTO [Suspect]
     Active Substance: SACUBITRIL\VALSARTAN
     Indication: CARDIAC FAILURE
     Dosage: 1 DF (24 MG SACUBITRIL/26 MG VALSARTAN), UNK
     Route: 065
     Dates: start: 2013

REACTIONS (6)
  - Extrasystoles [Unknown]
  - Cardiac failure [Unknown]
  - Syncope [Unknown]
  - Cardiac disorder [Unknown]
  - Loss of consciousness [Unknown]
  - Dizziness [Unknown]
